FAERS Safety Report 25971376 (Version 1)
Quarter: 2025Q4

REPORT INFORMATION
  Report Type: Spontaneous
  Country: ID (occurrence: ID)
  Receive Date: 20251028
  Receipt Date: 20251028
  Transmission Date: 20260118
  Serious: Yes (Death, Other)
  Sender: JOHNSON AND JOHNSON
  Company Number: ID-BAYER-2025A141672

PATIENT
  Age: 55 Year
  Sex: Female

DRUGS (4)
  1. XARELTO [Suspect]
     Active Substance: RIVAROXABAN
     Indication: Embolism venous
     Dosage: 20 MG
     Route: 048
  2. XARELTO [Suspect]
     Active Substance: RIVAROXABAN
     Indication: Pulmonary embolism
  3. HEPARIN [Suspect]
     Active Substance: HEPARIN SODIUM
     Indication: Embolism venous
  4. HEPARIN [Suspect]
     Active Substance: HEPARIN SODIUM
     Indication: Pulmonary embolism

REACTIONS (6)
  - Multiple organ dysfunction syndrome [Fatal]
  - Acute kidney injury [Unknown]
  - Hyperkalaemia [Unknown]
  - Hyperuricaemia [Unknown]
  - Hyperphosphataemia [Unknown]
  - Hypocalcaemia [Unknown]
